FAERS Safety Report 6819259-6 (Version None)
Quarter: 2010Q2

REPORT INFORMATION
  Report Type: 
  Country: None (occurrence: None)
  Receive Date: 20100630
  Receipt Date: 20100622
  Transmission Date: 20101027
  Serious: Yes (Other)
  Sender: FDA-Public Use
  Company Number: 014322

PATIENT

DRUGS (2)
  1. LACOSAMIDE [Suspect]
     Dosage: ORAL
     Route: 048
  2. KEPPRA [Suspect]
     Dosage: 500 MG

REACTIONS (1)
  - BLINDNESS [None]
